FAERS Safety Report 9465624 (Version 1)
Quarter: 2013Q3

REPORT INFORMATION
  Report Type: Spontaneous
  Country: BR (occurrence: BR)
  Receive Date: 20130820
  Receipt Date: 20130820
  Transmission Date: 20140515
  Serious: Yes (Hospitalization)
  Sender: FDA-Public Use
  Company Number: BR-SANOFI-AVENTIS-2013SA081425

PATIENT
  Sex: Male
  Weight: 78 kg

DRUGS (5)
  1. LANTUS [Suspect]
     Indication: DIABETES MELLITUS
     Route: 058
     Dates: start: 20130714
  2. DEVICE NOS [Concomitant]
     Indication: DEVICE THERAPY
     Dates: start: 20130714
  3. CILOSTAZOL [Concomitant]
     Indication: PERIPHERAL VASCULAR DISORDER
     Route: 048
  4. FOLIC ACID [Concomitant]
     Route: 048
  5. CITONEURIN [Concomitant]
     Indication: LUNG DISORDER
     Route: 048

REACTIONS (2)
  - Feeling abnormal [Recovered/Resolved]
  - Dyspnoea [Recovered/Resolved]
